FAERS Safety Report 6626118-0 (Version None)
Quarter: 2010Q1

REPORT INFORMATION
  Report Type: 
  Country: None (occurrence: None)
  Receive Date: 20100310
  Receipt Date: 20100302
  Transmission Date: 20100710
  Serious: Yes (Life-Threatening, Hospitalization)
  Sender: FDA-Public Use
  Company Number: B0637526A

PATIENT
  Age: 68 Year
  Sex: Male

DRUGS (3)
  1. ARIXTRA [Suspect]
     Indication: ARRHYTHMIA
     Dosage: 7.5MG PER DAY
     Route: 058
     Dates: start: 20100201, end: 20100201
  2. PLAVIX [Suspect]
     Indication: ACUTE CORONARY SYNDROME
     Route: 048
     Dates: start: 20100201, end: 20100201
  3. ASPEGIC 1000 [Suspect]
     Indication: ACUTE CORONARY SYNDROME
     Route: 048
     Dates: start: 20100201, end: 20100201

REACTIONS (6)
  - MULTI-ORGAN FAILURE [None]
  - MUSCLE HAEMORRHAGE [None]
  - OFF LABEL USE [None]
  - OVERDOSE [None]
  - RENAL FAILURE [None]
  - SHOCK HAEMORRHAGIC [None]
